FAERS Safety Report 23685921 (Version 5)
Quarter: 2024Q4

REPORT INFORMATION
  Report Type: Report from Study
  Country: CO (occurrence: CO)
  Receive Date: 20240329
  Receipt Date: 20241223
  Transmission Date: 20250114
  Serious: Yes (Other)
  Sender: TAKEDA
  Company Number: CO-TAKEDA-2020TUS038745

PATIENT
  Age: 28 Year
  Sex: Male
  Weight: 40 kg

DRUGS (2)
  1. VEDOLIZUMAB [Suspect]
     Active Substance: VEDOLIZUMAB
     Indication: Colitis ulcerative
     Dosage: 300 MILLIGRAM
  2. VEDOLIZUMAB [Suspect]
     Active Substance: VEDOLIZUMAB
     Dosage: 300 MILLIGRAM, Q4WEEKS

REACTIONS (19)
  - Hernia [Not Recovered/Not Resolved]
  - Frequent bowel movements [Not Recovered/Not Resolved]
  - Influenza like illness [Not Recovered/Not Resolved]
  - Depression [Unknown]
  - Abdominal pain [Not Recovered/Not Resolved]
  - Rhinorrhoea [Recovering/Resolving]
  - Nasal congestion [Unknown]
  - Nasopharyngitis [Unknown]
  - Influenza [Recovered/Resolved]
  - Fatigue [Unknown]
  - Malaise [Not Recovered/Not Resolved]
  - Drug ineffective [Unknown]
  - Stomatitis [Not Recovered/Not Resolved]
  - Weight increased [Unknown]
  - Diarrhoea [Unknown]
  - Product availability issue [Unknown]
  - Headache [Unknown]
  - Oropharyngeal pain [Not Recovered/Not Resolved]
  - Cough [Not Recovered/Not Resolved]

NARRATIVE: CASE EVENT DATE: 20210323
